FAERS Safety Report 10485902 (Version 2)
Quarter: 2014Q4

REPORT INFORMATION
  Report Type: Spontaneous
  Country: KP (occurrence: KP)
  Receive Date: 20141001
  Receipt Date: 20141001
  Transmission Date: 20150528
  Serious: Yes (Hospitalization)
  Sender: FDA-Public Use
  Company Number: KP-CIPLA LTD.-2014KP01466

PATIENT

DRUGS (1)
  1. ALENDRONATE [Suspect]
     Active Substance: ALENDRONATE SODIUM
     Indication: OSTEOPOROSIS
     Dosage: 70 MG,WEEKLY
     Route: 048

REACTIONS (2)
  - Atypical fracture [Recovered/Resolved]
  - Femur fracture [Recovered/Resolved]
